FAERS Safety Report 16005574 (Version 1)
Quarter: 2019Q1

REPORT INFORMATION
  Report Type: Spontaneous
  Country: US (occurrence: US)
  Receive Date: 20190226
  Receipt Date: 20190226
  Transmission Date: 20190418
  Serious: No
  Sender: FDA-Public Use
  Company Number: US-JNJFOC-20160523758

PATIENT
  Sex: Female
  Weight: 54.43 kg

DRUGS (2)
  1. SUDAFED NASAL DECONGESTANT MAXIMUM STRENGTH [Suspect]
     Active Substance: PSEUDOEPHEDRINE HYDROCHLORIDE
     Indication: NASAL DECONGESTION THERAPY
     Dosage: 2 TABLETS
     Route: 048
     Dates: start: 20160524, end: 20160524
  2. SUDAFED 12 HOUR [Concomitant]
     Active Substance: PSEUDOEPHEDRINE HYDROCHLORIDE
     Indication: NASAL CONGESTION
     Route: 048
     Dates: start: 20160523, end: 20160523

REACTIONS (1)
  - Drug ineffective [Unknown]
